FAERS Safety Report 18277174 (Version 1)
Quarter: 2020Q3

REPORT INFORMATION
  Report Type: Spontaneous
  Country: US (occurrence: US)
  Receive Date: 20200917
  Receipt Date: 20200917
  Transmission Date: 20201103
  Serious: No
  Sender: FDA-Public Use
  Company Number: US-ALLERGAN-1937749US

PATIENT
  Sex: Male
  Weight: 109 kg

DRUGS (2)
  1. OMEPRAZOLE. [Concomitant]
     Active Substance: OMEPRAZOLE
     Indication: GASTROOESOPHAGEAL REFLUX DISEASE
     Dosage: 60 MG, QAM
     Route: 048
     Dates: start: 20190725
  2. SUCRALFATE ? BP [Suspect]
     Active Substance: SUCRALFATE
     Indication: IRRITABLE BOWEL SYNDROME
     Dosage: 1 G, Q6HR
     Route: 048

REACTIONS (4)
  - Intentional product misuse [Unknown]
  - Oral pain [Not Recovered/Not Resolved]
  - Stomatitis [Not Recovered/Not Resolved]
  - Glossodynia [Unknown]
